FAERS Safety Report 14080783 (Version 1)
Quarter: 2017Q4

REPORT INFORMATION
  Report Type: Report from Study
  Country: AU (occurrence: AU)
  Receive Date: 20171012
  Receipt Date: 20171012
  Transmission Date: 20180321
  Serious: Yes (Hospitalization)
  Sender: FDA-Public Use
  Company Number: AU-ASTRAZENECA-2017SF03307

PATIENT
  Age: 22624 Day
  Sex: Male
  Weight: 80 kg

DRUGS (13)
  1. PEMETREXED. [Suspect]
     Active Substance: PEMETREXED
     Indication: MESOTHELIOMA
     Dosage: 1050 MG
     Route: 042
  2. DURVALUMAB. [Suspect]
     Active Substance: DURVALUMAB
     Indication: MESOTHELIOMA
     Dosage: 1125 MG DAY 1 ONLY OF 21 DAY CYCLE
     Route: 042
     Dates: start: 20170817
  3. METOCLOPRAMIDE. [Concomitant]
     Active Substance: METOCLOPRAMIDE
     Indication: PROPHYLAXIS
     Dosage: 20 MG PRN
     Route: 048
     Dates: start: 20170817
  4. ZOFRAN [Concomitant]
     Active Substance: ONDANSETRON HYDROCHLORIDE
     Dosage: AS REQUIRED
     Route: 048
     Dates: start: 20170820
  5. OXYCODONE [Concomitant]
     Active Substance: OXYCODONE
     Indication: CHRONIC DISEASE
     Dosage: 5 MG PRN
     Route: 065
     Dates: start: 1987
  6. CISPLATIN. [Suspect]
     Active Substance: CISPLATIN
     Indication: MESOTHELIOMA
     Dosage: 160 MG
     Route: 042
  7. DULOXETINE. [Concomitant]
     Active Substance: DULOXETINE
     Indication: CHRONIC DISEASE
     Dosage: 60 MG ONCE A DAY
     Route: 048
     Dates: start: 2016
  8. DIAZEPAM. [Concomitant]
     Active Substance: DIAZEPAM
     Indication: CHRONIC DISEASE
     Dosage: 5 MG ONCE A DAY
     Route: 048
     Dates: start: 1987
  9. DOMPERIDONE [Concomitant]
     Active Substance: DOMPERIDONE
     Indication: CHRONIC DISEASE
     Dosage: 10 MG TWICE A DAY
     Route: 048
     Dates: start: 2012
  10. TARGIN [Concomitant]
     Active Substance: NALOXONE HYDROCHLORIDE\OXYCODONE HYDROCHLORIDE
     Dosage: 30 MG THREE TIMES A DAY
     Route: 048
     Dates: start: 20170821
  11. MOVICOL [Concomitant]
     Active Substance: POLYETHYLENE GLYCOL 3350\POTASSIUM CHLORIDE\SODIUM BICARBONATE\SODIUM CHLORIDE
     Dosage: AS REQUIRED
     Route: 048
     Dates: start: 20170828, end: 201709
  12. DABIGATRAN [Concomitant]
     Active Substance: DABIGATRAN
     Indication: PROPHYLAXIS
     Dosage: 150 MG ONCE A DAY
     Route: 048
     Dates: start: 2003
  13. BISOPROLOL [Concomitant]
     Active Substance: BISOPROLOL
     Indication: CHRONIC DISEASE
     Dosage: 5 MG ONCE A DAY
     Route: 048
     Dates: start: 2009

REACTIONS (1)
  - Vision blurred [Not Recovered/Not Resolved]

NARRATIVE: CASE EVENT DATE: 20170912
